FAERS Safety Report 7077391-9 (Version None)
Quarter: 2010Q4

REPORT INFORMATION
  Report Type: 
  Country: None (occurrence: None)
  Receive Date: 20101101
  Receipt Date: 20100315
  Transmission Date: 20110411
  Serious: Yes (Other)
  Sender: FDA-Public Use
  Company Number: US-MERCK-1010USA03264

PATIENT
  Sex: Male

DRUGS (1)
  1. TIMOPTIC [Suspect]
     Route: 065
     Dates: end: 20100218

REACTIONS (1)
  - BLINDNESS TRANSIENT [None]
